FAERS Safety Report 5070147-8 (Version None)
Quarter: 2006Q3

REPORT INFORMATION
  Report Type: 
  Country: None (occurrence: None)
  Receive Date: 20060802
  Receipt Date: 20060802
  Transmission Date: 20061208
  Serious: Yes (Life-Threatening)
  Sender: FDA-Public Use
  Company Number: None

PATIENT
  Age: 80 Year
  Sex: Female
  Weight: 69.4 kg

DRUGS (16)
  1. MORPHINE [Suspect]
     Indication: POSTOPERATIVE ANALGESIA
     Dosage: 1MG Q8MIN/LIMIT  8MG/HR IV
     Route: 042
     Dates: start: 20050909, end: 20050909
  2. PROMETHAZINE [Suspect]
     Indication: POST PROCEDURAL NAUSEA
     Dosage: 12.5 TO 25MG EVERY 4 HOURS PRN  IV
     Route: 042
  3. ESOMEPRAZOLE MAGNESIUM [Concomitant]
  4. METOPROLOL TARTRATE [Concomitant]
  5. MICARDIS [Concomitant]
  6. VERAPAMIL [Concomitant]
  7. PREMARIN [Concomitant]
  8. ULTRACET [Concomitant]
  9. LORAZEPAM [Concomitant]
  10. RISIDRONATE [Concomitant]
  11. D5LR [Concomitant]
  12. METOPROLOL TARTRATE [Concomitant]
  13. PANTOPRAZOLE SODIUM [Concomitant]
  14. LORAZEPAM [Concomitant]
  15. PROMETHAZINE [Concomitant]
  16. MORPHINE [Concomitant]

REACTIONS (3)
  - LOSS OF CONSCIOUSNESS [None]
  - OXYGEN SATURATION DECREASED [None]
  - RESPIRATORY RATE DECREASED [None]
